FAERS Safety Report 21525881 (Version 1)
Quarter: 2022Q4

REPORT INFORMATION
  Report Type: Spontaneous
  Country: US (occurrence: US)
  Receive Date: 20221031
  Receipt Date: 20221031
  Transmission Date: 20230113
  Serious: No
  Sender: FDA-Public Use
  Company Number: US-Accord-274279

PATIENT

DRUGS (1)
  1. GLYCOPYRROLATE [Suspect]
     Active Substance: GLYCOPYRROLATE
     Indication: Product used for unknown indication
     Dosage: STRENGTH: 0.2MG/ML,?DOSE: 0.2MG/ML EVERY 4 HOURS
     Route: 048

REACTIONS (1)
  - Product prescribing error [Unknown]
